FAERS Safety Report 9284341 (Version 1)
Quarter: 2013Q2

REPORT INFORMATION
  Report Type: Spontaneous
  Country: US (occurrence: US)
  Receive Date: 20130510
  Receipt Date: 20130510
  Transmission Date: 20140414
  Serious: No
  Sender: FDA-Public Use
  Company Number: US-PFIZER INC-2013145255

PATIENT
  Age: 50 Year
  Sex: Female
  Weight: 89.8 kg

DRUGS (4)
  1. LYRICA [Suspect]
     Indication: PAIN
     Dosage: 75 MG, 2X/DAY
     Dates: start: 2010
  2. LYRICA [Suspect]
     Indication: FIBROMYALGIA
  3. NOVOLOG [Concomitant]
     Indication: DIABETES MELLITUS
     Dosage: 15 MG, 2X/DAY
  4. LANTUS [Concomitant]
     Indication: DIABETES MELLITUS
     Dosage: 20 MG, 2X/DAY

REACTIONS (2)
  - Insomnia [Unknown]
  - Pain [Unknown]
